FAERS Safety Report 5744561-9 (Version None)
Quarter: 2008Q2

REPORT INFORMATION
  Report Type: 
  Country: None (occurrence: None)
  Receive Date: 20080520
  Receipt Date: 20080423
  Transmission Date: 20081010
  Serious: No
  Sender: FDA-Public Use
  Company Number: US-BOEHRINGER INGELHEIM GMBH, GERMANY-2008-BP-06370BP

PATIENT
  Age: 56 Year
  Sex: Male

DRUGS (3)
  1. ZANTAC [Suspect]
     Indication: DYSPEPSIA
     Route: 048
     Dates: start: 20080401
  2. FLECAINIDE ACETATE [Concomitant]
     Indication: ARRHYTHMIA
     Route: 048
     Dates: start: 20070101
  3. METOPROLOL TARTRATE [Concomitant]
     Indication: HYPERTENSION
     Route: 048
     Dates: start: 20070101

REACTIONS (1)
  - INSOMNIA [None]
